FAERS Safety Report 8802515 (Version 2)
Quarter: 2014Q3

REPORT INFORMATION
  Report Type: Spontaneous
  Country: US (occurrence: US)
  Receive Date: 20120921
  Receipt Date: 20140826
  Transmission Date: 20150326
  Serious: Yes (Hospitalization, Other)
  Sender: FDA-Public Use
  Company Number: US-009507513-2009SP016952

PATIENT
  Sex: Female
  Weight: 147.42 kg

DRUGS (5)
  1. PREMARIN [Concomitant]
     Active Substance: ESTROGENS, CONJUGATED
     Indication: PRODUCT USED FOR UNKNOWN INDICATION
     Dosage: UPDATE (09APR2010)
     Dates: start: 200604
  2. BENEFIBER [Concomitant]
     Active Substance: STARCH, WHEAT
     Indication: CONSTIPATION
     Dosage: UPDATE (09APR2010) (STARTED IN OR AROUND AUG2004)
  3. CLOTRIMAZOLE. [Concomitant]
     Active Substance: CLOTRIMAZOLE
     Indication: PRODUCT USED FOR UNKNOWN INDICATION
     Dosage: UPDATE (09APR2010)
  4. NUVARING [Suspect]
     Active Substance: ETHINYL ESTRADIOL\ETONOGESTREL
     Indication: CONTRACEPTION
     Dosage: 0.12/0.015
     Route: 067
     Dates: start: 20050720, end: 20060921
  5. DIFLUCAN [Concomitant]
     Active Substance: FLUCONAZOLE
     Indication: FUNGAL INFECTION
     Dosage: WEEKLY X 1 MONTH, THEN 1 PER MONTH AS SUPPRESSIVE TREATMENT - UPDATE (09APR2010)

REACTIONS (17)
  - Deep vein thrombosis [Unknown]
  - Cyst [Unknown]
  - Throat tightness [Unknown]
  - Chest pain [Unknown]
  - Urinary tract infection [Unknown]
  - Dyspnoea [Unknown]
  - Constipation [Unknown]
  - Chiropractic [Unknown]
  - Pharyngitis [Unknown]
  - Papule [Unknown]
  - Upper respiratory tract infection [Unknown]
  - Vaginal haemorrhage [Unknown]
  - Cyst removal [Unknown]
  - Hiatus hernia [Unknown]
  - Pulmonary embolism [Recovered/Resolved]
  - Rectal haemorrhage [Unknown]
  - Dyspnoea [Unknown]

NARRATIVE: CASE EVENT DATE: 2006
